FAERS Safety Report 6607050-5 (Version None)
Quarter: 2010Q1

REPORT INFORMATION
  Report Type: 
  Country: None (occurrence: None)
  Receive Date: 20100219
  Receipt Date: 20100210
  Transmission Date: 20100710
  Serious: Yes (Hospitalization)
  Sender: FDA-Public Use
  Company Number: 2010000787

PATIENT
  Age: 63 Year
  Sex: Male
  Weight: 115 kg

DRUGS (3)
  1. TREANDA [Suspect]
     Indication: CHRONIC LYMPHOCYTIC LEUKAEMIA
     Dosage: (100 MG/M2, INTRAVENOUS
     Route: 042
  2. TREANDA [Suspect]
     Indication: NODAL MARGINAL ZONE B-CELL LYMPHOMA
     Dosage: (100 MG/M2, INTRAVENOUS
     Route: 042
  3. RITUXAN [Concomitant]

REACTIONS (4)
  - MESENTERIC VEIN THROMBOSIS [None]
  - PORTAL VEIN THROMBOSIS [None]
  - PULMONARY EMBOLISM [None]
  - SPLENIC VEIN THROMBOSIS [None]
